FAERS Safety Report 23535653 (Version 4)
Quarter: 2024Q3

REPORT INFORMATION
  Report Type: Report from Study
  Country: US (occurrence: US)
  Receive Date: 20240218
  Receipt Date: 20240723
  Transmission Date: 20241017
  Serious: Yes (Hospitalization, Other)
  Sender: ABBVIE
  Company Number: US-ABBVIE-5639576

PATIENT
  Sex: Female

DRUGS (2)
  1. HUMIRA [Suspect]
     Active Substance: ADALIMUMAB
     Indication: Rheumatoid arthritis
     Dosage: FORM STRENGTH: 40 MILLIGRAM, CITRATE FREE
     Route: 058
     Dates: start: 20201026
  2. HUMIRA [Suspect]
     Active Substance: ADALIMUMAB
     Dosage: FORM STRENGTH: 40 MILLIGRAM, CITRATE FREE
     Route: 058

REACTIONS (12)
  - Loss of consciousness [Recovered/Resolved]
  - Anaemia [Unknown]
  - Loss of consciousness [Recovered/Resolved]
  - Device leakage [Unknown]
  - Nausea [Unknown]
  - Vomiting [Unknown]
  - Malaise [Unknown]
  - Fatigue [Unknown]
  - Impaired driving ability [Unknown]
  - Vomiting [Recovered/Resolved]
  - Dizziness [Recovered/Resolved]
  - Dizziness [Unknown]

NARRATIVE: CASE EVENT DATE: 20240101
